FAERS Safety Report 26115931 (Version 1)
Quarter: 2025Q4

REPORT INFORMATION
  Report Type: Spontaneous
  Country: GB (occurrence: GB)
  Receive Date: 20251203
  Receipt Date: 20251203
  Transmission Date: 20260117
  Serious: Yes (Disabling, Other)
  Sender: DR REDDYS
  Company Number: None

PATIENT
  Age: 37 Year
  Sex: Male
  Weight: 82 kg

DRUGS (1)
  1. FINASTERIDE [Suspect]
     Active Substance: FINASTERIDE
     Indication: Alopecia
     Dates: start: 20230401, end: 20231201

REACTIONS (3)
  - Erectile dysfunction [Not Recovered/Not Resolved]
  - Genital atrophy [Not Recovered/Not Resolved]
  - Memory impairment [Not Recovered/Not Resolved]
